FAERS Safety Report 4732793-8 (Version None)
Quarter: 2005Q3

REPORT INFORMATION
  Report Type: 
  Country: None (occurrence: None)
  Receive Date: 20050801
  Receipt Date: 20050728
  Transmission Date: 20060218
  Serious: Yes (Hospitalization)
  Sender: FDA-Public Use
  Company Number: A044-002-005695

PATIENT
  Age: 84 Year
  Sex: Female

DRUGS (1)
  1. ARICEPT [Suspect]
     Indication: DEMENTIA ALZHEIMER'S TYPE
     Dosage: 10 MG, 1 1IN 1 D, ORAL
     Route: 048
     Dates: start: 20050401

REACTIONS (3)
  - HYPOALBUMINAEMIA [None]
  - INFLAMMATION [None]
  - OEDEMA [None]
